FAERS Safety Report 25508960 (Version 7)
Quarter: 2025Q4

REPORT INFORMATION
  Report Type: Report from Study
  Country: CA (occurrence: CA)
  Receive Date: 20250703
  Receipt Date: 20251114
  Transmission Date: 20260118
  Serious: Yes (Other)
  Sender: IPSEN BIOPHARMACEUTICALS, INC.
  Company Number: CA-IPSEN Group, Research and Development-2025-00714

PATIENT
  Age: 70 Year
  Sex: Female

DRUGS (13)
  1. LANREOTIDE ACETATE [Suspect]
     Active Substance: LANREOTIDE ACETATE
     Indication: Gastroenteropancreatic neuroendocrine tumour disease
     Dosage: DEEP SUBCUTANEOUS?EXPIRY DATE: 28-FEB-2027, 31/10/2027?LOT NUMBER: 005877/013123
     Route: 058
     Dates: start: 20191008
  2. LANREOTIDE ACETATE [Suspect]
     Active Substance: LANREOTIDE ACETATE
     Indication: Carcinoid syndrome
     Dosage: DEEP SUBCUTANEOUS
     Route: 058
  3. POTASSIUM [Concomitant]
     Active Substance: POTASSIUM
     Dosage: STOPPED IT EXACT DATE UNKNOWN
  4. RAMIPRIL [Concomitant]
     Active Substance: RAMIPRIL
     Indication: Blood pressure abnormal
     Dosage: 0.625 MG 1 CO DIE
  5. RAMIPRIL [Concomitant]
     Active Substance: RAMIPRIL
     Dosage: 7.5 MG AM AND 5 MG PM
  6. DEXILANT [Concomitant]
     Active Substance: DEXLANSOPRAZOLE
  7. PREMARIN [Concomitant]
     Active Substance: ESTROGENS, CONJUGATED
     Dosage: VAGINAL CREAM ONCE A WEEK
  8. PANTOPRAZOLE [Concomitant]
     Active Substance: PANTOPRAZOLE
     Indication: Gastrooesophageal reflux disease
     Dosage: 40MG TWICE A DAY
  9. ASPIRIN [Concomitant]
     Active Substance: ASPIRIN
     Dosage: DISCONTINUED
  10. NIACINAMIDE [Concomitant]
     Active Substance: NIACINAMIDE
  11. METOCLOPRAMIDE [Concomitant]
     Active Substance: METOCLOPRAMIDE
     Dosage: PRN
  12. PROCHLORAZINE [Concomitant]
     Indication: Nausea
     Dosage: FOUR TIMES A DAY PRN
  13. PROCHLORAZINE [Concomitant]
     Indication: Dizziness

REACTIONS (9)
  - Myocarditis [Not Recovered/Not Resolved]
  - Cancer pain [Not Recovered/Not Resolved]
  - Nausea [Not Recovered/Not Resolved]
  - Dizziness [Recovered/Resolved]
  - Abdominal pain [Not Recovered/Not Resolved]
  - Vitamin B12 decreased [Not Recovered/Not Resolved]
  - Anxiety [Not Recovered/Not Resolved]
  - Inappropriate schedule of product administration [Unknown]
  - Adverse drug reaction [Unknown]

NARRATIVE: CASE EVENT DATE: 20250201
